FAERS Safety Report 7323324-7 (Version None)
Quarter: 2011Q1

REPORT INFORMATION
  Report Type: 
  Country: None (occurrence: None)
  Receive Date: 20110301
  Receipt Date: 20110216
  Transmission Date: 20110831
  Serious: Yes (Death, Hospitalization)
  Sender: FDA-Public Use
  Company Number: US-SANOFI-AVENTIS-2011SA010154

PATIENT
  Age: 74 Year
  Sex: Male

DRUGS (7)
  1. ENALAPRIL [Concomitant]
     Dates: end: 20110101
  2. ALLOPURINOL [Concomitant]
     Dates: end: 20110101
  3. MULTAQ [Suspect]
     Indication: ATRIAL FIBRILLATION
     Route: 048
     Dates: start: 20100304, end: 20110118
  4. DOXAZOSIN [Concomitant]
     Dates: end: 20110101
  5. WARFARIN [Concomitant]
     Dates: end: 20110101
  6. PIOGLITAZONE HYDROCHLORIDE [Concomitant]
     Dosage: 30/2MG
     Dates: end: 20110101
  7. METOLAZONE [Concomitant]
     Dates: end: 20110101

REACTIONS (3)
  - MULTI-ORGAN FAILURE [None]
  - PNEUMONIA [None]
  - ACUTE RESPIRATORY DISTRESS SYNDROME [None]
